FAERS Safety Report 8470772-8 (Version None)
Quarter: 2012Q2

REPORT INFORMATION
  Report Type: 
  Country: None (occurrence: None)
  Receive Date: 20120620
  Receipt Date: 20120611
  Transmission Date: 20120825
  Serious: Yes (Hospitalization)
  Sender: FDA-Public Use
  Company Number: 2012MA007373

PATIENT
  Age: 72 Year
  Sex: Female

DRUGS (9)
  1. QUININE SULFATE [Concomitant]
  2. LACTULOSE [Concomitant]
  3. RAMIPRIL [Concomitant]
  4. SENNA-MINT WAF [Concomitant]
  5. NAPROXEN [Suspect]
     Dosage: 500 MG;BID;PO
     Route: 048
     Dates: start: 20111221, end: 20120520
  6. FOSTAIR [Concomitant]
  7. ALBUTEROL SULATE [Concomitant]
  8. OMEPRAZOLE [Concomitant]
  9. BENDROFLUMETHIAZIDE [Concomitant]

REACTIONS (3)
  - DUODENAL ULCER [None]
  - MELAENA [None]
  - HAEMATEMESIS [None]
